FAERS Safety Report 8773890 (Version 1)
Quarter: 2012Q4

REPORT INFORMATION
  Report Type: 
  Country: FR (occurrence: FR)
  Receive Date: 20120907
  Receipt Date: 20120907
  Transmission Date: 20130627
  Serious: Yes (Other)
  Sender: FDA-Public Use
  Company Number: FR-BRISTOL-MYERS SQUIBB COMPANY-16908733

PATIENT
  Age: 71 Year

DRUGS (1)
  1. TRIAMCINOLONE ACE INJ [Suspect]
     Indication: MACULAR HOLE
     Dosage: Inj.

REACTIONS (1)
  - Retinal disorder [Unknown]
